FAERS Safety Report 25461842 (Version 1)
Quarter: 2025Q2

REPORT INFORMATION
  Report Type: Spontaneous
  Country: US (occurrence: None)
  Receive Date: 20250619
  Receipt Date: 20250619
  Transmission Date: 20250716
  Serious: Yes (Other)
  Sender: FDA-CTU
  Company Number: None

PATIENT
  Age: 28 Year
  Sex: Female
  Weight: 93.15 kg

DRUGS (10)
  1. ACETAZOLAMIDE [Suspect]
     Active Substance: ACETAZOLAMIDE
     Indication: Idiopathic intracranial hypertension
     Route: 048
     Dates: start: 20250112
  2. ZEPBOUND [Concomitant]
     Active Substance: TIRZEPATIDE
  3. VYVANSE [Concomitant]
     Active Substance: LISDEXAMFETAMINE DIMESYLATE
  4. BUPROPION [Concomitant]
     Active Substance: BUPROPION
  5. NALTREXONE [Concomitant]
     Active Substance: NALTREXONE
  6. Jounavx [Concomitant]
  7. SKYLA [Concomitant]
     Active Substance: LEVONORGESTREL
  8. Fiber capsules [Concomitant]
  9. BIOTIN [Concomitant]
     Active Substance: BIOTIN
  10. collagen capsules [Concomitant]

REACTIONS (2)
  - Alopecia [None]
  - Onychoclasis [None]

NARRATIVE: CASE EVENT DATE: 20250131
